FAERS Safety Report 5400320-8 (Version None)
Quarter: 2007Q3

REPORT INFORMATION
  Report Type: 
  Country: None (occurrence: None)
  Receive Date: 20070725
  Receipt Date: 20070719
  Transmission Date: 20080115
  Serious: Yes (Death)
  Sender: FDA-Public Use
  Company Number: 118-20785-07071050

PATIENT
  Age: 65 Year
  Sex: Male

DRUGS (3)
  1. THALIDOMIDE [Suspect]
     Indication: MULTIPLE MYELOMA
     Dosage: 150 MG, 3 IN 1 D, ORAL
     Route: 048
     Dates: start: 20070424, end: 20070718
  2. CYCLOPHOSPHAMIDE [Concomitant]
  3. DEXAMETHASONE TAB [Concomitant]

REACTIONS (1)
  - MULTI-ORGAN FAILURE [None]
